FAERS Safety Report 25852433 (Version 1)
Quarter: 2025Q3

REPORT INFORMATION
  Report Type: Spontaneous
  Country: US (occurrence: US)
  Receive Date: 20250926
  Receipt Date: 20250926
  Transmission Date: 20251021
  Serious: Yes (Hospitalization, Other)
  Sender: TEVA
  Company Number: US-TEVA-VS-3374678

PATIENT
  Age: 76 Year
  Sex: Female
  Weight: 102.05 kg

DRUGS (6)
  1. CEPHALEXIN [Suspect]
     Active Substance: CEPHALEXIN
     Indication: Product used for unknown indication
     Route: 065
     Dates: start: 2020
  2. DUPIXENT [Suspect]
     Active Substance: DUPILUMAB
     Indication: Product used for unknown indication
     Dosage: STRENGTH: 300MG/ 2ML, DELIVERED VIA DUPIXENT SINGLE DOSE PREFILLED PEN, 300 MG QOW
     Route: 058
  3. CIPROFLOXACIN [Suspect]
     Active Substance: CIPROFLOXACIN
     Indication: Product used for unknown indication
     Route: 065
  4. NICKEL [Suspect]
     Active Substance: NICKEL
     Indication: Product used for unknown indication
     Route: 065
  5. OXYCODONE [Suspect]
     Active Substance: OXYCODONE
     Indication: Product used for unknown indication
     Route: 065
  6. HYDROCODONE [Suspect]
     Active Substance: HYDROCODONE
     Indication: Product used for unknown indication
     Route: 065

REACTIONS (16)
  - Giant cell arteritis [Recovered/Resolved]
  - Erythema [Unknown]
  - Hot flush [Unknown]
  - Dyspnoea [Unknown]
  - Tension headache [Recovered/Resolved]
  - Throat irritation [Unknown]
  - Rash [Unknown]
  - Contraindicated product administered [Unknown]
  - Hallucination, visual [Recovered/Resolved]
  - Hypertensive urgency [Recovered/Resolved]
  - Pruritus [Unknown]
  - Gout [Unknown]
  - Oedema [Unknown]
  - Hypertension [Unknown]
  - Feeling abnormal [Unknown]
  - Drug dependence [Unknown]

NARRATIVE: CASE EVENT DATE: 20200101
